FAERS Safety Report 7945363-5 (Version None)
Quarter: 2011Q4

REPORT INFORMATION
  Report Type: 
  Country: None (occurrence: None)
  Receive Date: 20111129
  Receipt Date: 20110509
  Transmission Date: 20120403
  Serious: No
  Sender: FDA-Public Use
  Company Number: US-GLAXOSMITHKLINE-A0926595A

PATIENT
  Age: 18 Year
  Sex: Male

DRUGS (4)
  1. BUPROPION HYDROCHLORIDE [Suspect]
     Indication: ATTENTION DEFICIT/HYPERACTIVITY DISORDER
     Route: 048
     Dates: start: 20110401
  2. VITAMIN D [Concomitant]
  3. VYVANSE [Concomitant]
  4. CELEXA [Concomitant]

REACTIONS (1)
  - DRUG SCREEN POSITIVE [None]
